FAERS Safety Report 14410424 (Version 1)
Quarter: 2018Q1

REPORT INFORMATION
  Report Type: Spontaneous
  Country: US (occurrence: US)
  Receive Date: 20180116
  Receipt Date: 20180116
  Transmission Date: 20180509
  Serious: No
  Sender: FDA-Public Use
  Company Number: None

PATIENT
  Age: 71 Year
  Sex: Female

DRUGS (1)
  1. COSENTYX [Suspect]
     Active Substance: SECUKINUMAB
     Indication: PSORIATIC ARTHROPATHY
     Dosage: FREQUENCY - EVERY 28 DAYS
     Route: 058
     Dates: start: 20171025

REACTIONS (3)
  - Faeces discoloured [None]
  - Product colour issue [None]
  - Poor quality drug administered [None]

NARRATIVE: CASE EVENT DATE: 20171220
